FAERS Safety Report 18716692 (Version 1)
Quarter: 2021Q1

REPORT INFORMATION
  Report Type: Spontaneous
  Country: US (occurrence: US)
  Receive Date: 20210107
  Receipt Date: 20210107
  Transmission Date: 20210419
  Serious: No
  Sender: FDA-Public Use
  Company Number: None

PATIENT
  Age: 68 Year
  Sex: Female

DRUGS (1)
  1. TRAZODONE (TRAZODONE HCL 50MG TAB) [Suspect]
     Active Substance: TRAZODONE HYDROCHLORIDE
     Indication: POST-TRAUMATIC STRESS DISORDER
     Route: 048
     Dates: start: 20190603, end: 20200316

REACTIONS (2)
  - Therapy change [None]
  - Hallucination, visual [None]

NARRATIVE: CASE EVENT DATE: 20200229
